FAERS Safety Report 23472403 (Version 1)
Quarter: 2024Q1

REPORT INFORMATION
  Report Type: Spontaneous
  Country: FR (occurrence: FR)
  Receive Date: 20240202
  Receipt Date: 20240202
  Transmission Date: 20240409
  Serious: Yes (Other)
  Sender: FDA-Public Use
  Company Number: FR-ANIPHARMA-2024-FR-000028

PATIENT
  Age: 28 Year
  Sex: Female
  Weight: 45 kg

DRUGS (24)
  1. CANDESARTAN CILEXETIL [Suspect]
     Active Substance: CANDESARTAN CILEXETIL
     Indication: Product used for unknown indication
     Dosage: 16 MG BID
     Route: 065
  2. LEUCOVORIN CALCIUM [Concomitant]
     Active Substance: LEUCOVORIN CALCIUM
     Dosage: MONDAYS
     Route: 065
  3. PHOCYTAN [Concomitant]
     Active Substance: .ALPHA.-GLUCOSE-1-PHOSPHATE
     Dosage: 2 AMPOULES AFTER EACH SESSIO
     Route: 065
  4. VENOFER [Concomitant]
     Active Substance: IRON SUCROSE
     Dosage: 1 DF DAILY
     Route: 065
  5. ASCORBIC ACID [Concomitant]
     Active Substance: ASCORBIC ACID
     Route: 065
  6. ROXADUSTAT [Concomitant]
     Active Substance: ROXADUSTAT
     Route: 065
  7. DOMPERIDONE [Concomitant]
     Active Substance: DOMPERIDONE
     Route: 065
  8. AMLODIPINE [Concomitant]
     Active Substance: AMLODIPINE BESYLATE
     Dosage: 5 MG BID
     Route: 065
  9. BISOPROLOL [Concomitant]
     Active Substance: BISOPROLOL\BISOPROLOL FUMARATE
     Dosage: 5 MG BID
     Route: 065
  10. CALCIUM [Concomitant]
     Active Substance: CALCIUM
     Dosage: 10AM AND 4PM
     Route: 065
  11. KAYEXALATE [Concomitant]
     Active Substance: SODIUM POLYSTYRENE SULFONATE
     Dosage: AT LUNCHTIME ON NON-DIALYSIS DAYS
     Route: 065
  12. VALGANCICLOVIR HYDROCHLORIDE [Suspect]
     Active Substance: VALGANCICLOVIR HYDROCHLORIDE
     Route: 048
     Dates: start: 20230821, end: 20231127
  13. WARFARIN [Concomitant]
     Active Substance: WARFARIN
     Dosage: 4 MG DAILY
     Route: 065
  14. PANTOPRAZOLE [Concomitant]
     Active Substance: PANTOPRAZOLE
     Dosage: 40 MG DAILY
     Route: 065
  15. ONDANSETRON [Concomitant]
     Active Substance: ONDANSETRON
     Dosage: BEFORE EACH DIALYSIS
     Route: 065
  16. CLINUTREN FRUIT [Concomitant]
     Dosage: BEFORE EACH DIALYSIS
     Route: 065
  17. EMLA [Concomitant]
     Active Substance: LIDOCAINE\PRILOCAINE
     Dosage: BEFORE EACH DIALYSIS
     Route: 065
  18. GANCICLOVIR [Suspect]
     Active Substance: GANCICLOVIR
     Dosage: AFTER EACH HAEMODIALYSIS SESSION
     Route: 065
  19. PREDNISONE [Suspect]
     Active Substance: PREDNISONE
     Dosage: 10 MG DAILY
     Route: 065
  20. METHOTREXATE SODIUM [Suspect]
     Active Substance: METHOTREXATE SODIUM
     Dosage: 7.5 MG WEEK
     Route: 058
  21. DOXYCYCLINE [Suspect]
     Active Substance: DOXYCYCLINE
     Route: 065
  22. URAPIDIL [Concomitant]
     Active Substance: URAPIDIL
     Dosage: 60 MG TID
     Route: 065
  23. ALFACALCIDOL [Concomitant]
     Active Substance: ALFACALCIDOL
     Dosage: AFTER EACH SESSION
     Route: 065
  24. FOLIC ACID [Concomitant]
     Active Substance: FOLIC ACID
     Dosage: 2 DF WEEK
     Route: 065

REACTIONS (2)
  - Bicytopenia [Not Recovered/Not Resolved]
  - Agranulocytosis [Not Recovered/Not Resolved]

NARRATIVE: CASE EVENT DATE: 20230601
